FAERS Safety Report 8916035 (Version 1)
Quarter: 2012Q4

REPORT INFORMATION
  Report Type: 
  Country: US (occurrence: US)
  Receive Date: 20121119
  Receipt Date: 20121119
  Transmission Date: 20130627
  Serious: No
  Sender: FDA-Public Use
  Company Number: US-B.I. PHARMACEUTICALS,INC./RIDGEFIELD-2012-BI-00820BP

PATIENT
  Sex: Female
  Weight: 51 kg

DRUGS (8)
  1. SPIRIVA [Suspect]
     Indication: CHRONIC OBSTRUCTIVE PULMONARY DISEASE
     Dosage: 18 mcg
     Route: 055
  2. ZOCOR [Concomitant]
     Indication: BLOOD CHOLESTEROL INCREASED
     Dosage: 20 mg
     Route: 048
  3. LORTAB [Concomitant]
     Indication: FRACTURE
     Route: 048
  4. PROAIR [Concomitant]
     Route: 055
  5. XANAX [Concomitant]
     Indication: SLEEP DISORDER
     Dosage: 0.5 mg
     Route: 048
  6. GLUCOPHAGE [Concomitant]
     Indication: DIABETES MELLITUS
     Dosage: 1000 mg
     Route: 048
  7. AMBIEN [Concomitant]
     Indication: SLEEP DISORDER
     Dosage: 5 mg
     Route: 048
  8. MORPHINE [Concomitant]
     Dosage: 60 mg
     Route: 048

REACTIONS (7)
  - Pollakiuria [Not Recovered/Not Resolved]
  - Dysuria [Not Recovered/Not Resolved]
  - Diarrhoea [Not Recovered/Not Resolved]
  - Oropharyngeal pain [Not Recovered/Not Resolved]
  - Dry mouth [Not Recovered/Not Resolved]
  - Dysphonia [Not Recovered/Not Resolved]
  - Speech disorder [Not Recovered/Not Resolved]
